FAERS Safety Report 8212286-6 (Version None)
Quarter: 2012Q1

REPORT INFORMATION
  Report Type: 
  Country: None (occurrence: None)
  Receive Date: 20120315
  Receipt Date: 20120307
  Transmission Date: 20120608
  Serious: Yes (Other)
  Sender: FDA-Public Use
  Company Number: IN-ROCHE-1047725

PATIENT
  Age: 40 Year
  Weight: 50 kg

DRUGS (18)
  1. AVASTIN [Suspect]
     Dates: start: 20110625
  2. AVASTIN [Suspect]
     Dates: start: 20110808
  3. AVASTIN [Suspect]
     Dates: start: 20110831
  4. AVASTIN [Suspect]
     Dates: start: 20110922
  5. PEMETREXED DISODIUM [Suspect]
     Dates: start: 20110625
  6. PEMETREXED DISODIUM [Suspect]
     Dates: start: 20110716
  7. CARBOPLATIN [Suspect]
     Dates: start: 20110716
  8. AVASTIN [Suspect]
     Indication: LUNG CARCINOMA CELL TYPE UNSPECIFIED STAGE IV
     Dates: start: 20110625, end: 20111015
  9. CARBOPLATIN [Suspect]
     Dates: start: 20110625
  10. CARBOPLATIN [Suspect]
     Dates: start: 20110831
  11. AVASTIN [Suspect]
     Dates: start: 20110716
  12. CARBOPLATIN [Suspect]
     Dates: start: 20110922
  13. PEMETREXED DISODIUM [Suspect]
     Indication: LUNG CARCINOMA CELL TYPE UNSPECIFIED STAGE IV
     Dates: start: 20110625, end: 20111015
  14. PEMETREXED DISODIUM [Suspect]
     Dates: start: 20110922
  15. PEMETREXED DISODIUM [Suspect]
     Dates: start: 20110808
  16. PEMETREXED DISODIUM [Suspect]
     Dates: start: 20110831
  17. CARBOPLATIN [Suspect]
     Indication: LUNG CARCINOMA CELL TYPE UNSPECIFIED STAGE IV
     Dates: start: 20110625, end: 20111015
  18. CARBOPLATIN [Suspect]
     Dates: start: 20110808

REACTIONS (5)
  - HYPERTENSION [None]
  - ABDOMINAL PAIN [None]
  - LUNG ADENOCARCINOMA [None]
  - DISEASE PROGRESSION [None]
  - NEOPLASM PROGRESSION [None]
